FAERS Safety Report 4825961-8 (Version None)
Quarter: 2005Q4

REPORT INFORMATION
  Report Type: 
  Country: None (occurrence: None)
  Receive Date: 20051111
  Receipt Date: 20051019
  Transmission Date: 20060501
  Serious: Yes (Hospitalization)
  Sender: FDA-Public Use
  Company Number: JP-NOVOPROD-247970

PATIENT
  Age: 78 Year
  Sex: Female
  Weight: 42 kg

DRUGS (17)
  1. NOVOLIN N [Suspect]
     Indication: INSULIN-REQUIRING TYPE II DIABETES MELLITUS
     Dosage: 20 IU, QD
     Route: 058
     Dates: start: 20050415, end: 20050916
  2. NOVOLIN 50R CHU FLEXPEN [Suspect]
     Indication: INSULIN-REQUIRING TYPE II DIABETES MELLITUS
     Dosage: 54 IU, QD
     Route: 058
     Dates: start: 20050921, end: 20051017
  3. NOVORAPID CHU FLEXPEN [Suspect]
     Indication: INSULIN-REQUIRING TYPE II DIABETES MELLITUS
     Dosage: 70 IU, QD
     Route: 058
     Dates: start: 20051004, end: 20051017
  4. LANTUS [Concomitant]
     Dates: start: 20051001
  5. NOVOLIN R [Suspect]
     Indication: INSULIN-REQUIRING TYPE II DIABETES MELLITUS
     Dosage: 20 IU, QD
     Route: 058
     Dates: start: 20050317, end: 20050414
  6. HUMALOG [Concomitant]
     Dosage: 30 IU, QD
     Route: 058
     Dates: start: 20050916, end: 20050921
  7. HUMACART-N [Concomitant]
     Dosage: 16 IU, QD
     Route: 058
     Dates: start: 20050918, end: 20050921
  8. BUFERIN [Concomitant]
     Dosage: 81 MG, QD
     Route: 048
  9. LIPITOR                                 /NET/ [Concomitant]
     Dosage: 10 MG, QD
     Route: 048
  10. RENIVACE [Concomitant]
     Dosage: 5 MG, QD
     Route: 048
  11. ISOSORBIDE MONONITRATE [Concomitant]
     Dosage: 40 MG, QD
     Route: 048
  12. GASTER D [Concomitant]
     Dosage: 20 MG, QD
     Route: 048
  13. LASIX [Concomitant]
     Dosage: 40 MG, QD
     Route: 048
  14. FRANDOL [Concomitant]
     Dosage: 40 MG, QD
  15. CEROCRAL [Concomitant]
     Dosage: 60 MG, QD
     Route: 048
  16. NITRAZEPAM [Concomitant]
     Dosage: 5 MG, QD
     Route: 048
  17. ALOSENN [Concomitant]
     Indication: CONSTIPATION
     Dosage: 1 G, QD
     Route: 048

REACTIONS (3)
  - ANTI-INSULIN ANTIBODY INCREASED [None]
  - BLOOD GLUCOSE INCREASED [None]
  - DRUG HYPERSENSITIVITY [None]
